FAERS Safety Report 10583246 (Version 2)
Quarter: 2014Q4

REPORT INFORMATION
  Report Type: Spontaneous
  Country: GB (occurrence: GB)
  Receive Date: 20141114
  Receipt Date: 20141114
  Transmission Date: 20150529
  Serious: Yes (Other)
  Sender: FDA-Public Use
  Company Number: GB-TEVA-515753ISR

PATIENT
  Age: 55 Year
  Sex: Female
  Weight: 67 kg

DRUGS (5)
  1. MEBEVERINE [Concomitant]
     Active Substance: MEBEVERINE
     Dosage: 405 MILLIGRAM DAILY;
     Route: 065
     Dates: start: 201407
  2. QVAR [Suspect]
     Active Substance: BECLOMETHASONE DIPROPIONATE
     Indication: ASTHMA
     Dosage: 2 PUFFS, BD
     Route: 055
     Dates: start: 20140901, end: 20140926
  3. SUMATRIPTAN. [Concomitant]
     Active Substance: SUMATRIPTAN
     Route: 065
  4. GABAPENTIN. [Concomitant]
     Active Substance: GABAPENTIN
     Dosage: 600 MILLIGRAM DAILY; TAKEN FOR YEARS
     Route: 065
  5. LEVOTHYROXINE [Concomitant]
     Active Substance: LEVOTHYROXINE
     Dosage: 20+50MG DAILY, TAKEN FOR YEARS
     Route: 065
     Dates: start: 20141020

REACTIONS (6)
  - Dyspnoea [Recovering/Resolving]
  - Condition aggravated [Unknown]
  - Incorrect dose administered by device [Unknown]
  - Incorrect dose administered [Unknown]
  - Malaise [Unknown]
  - Device malfunction [Unknown]

NARRATIVE: CASE EVENT DATE: 2014
